FAERS Safety Report 6031120-6 (Version None)
Quarter: 2008Q4

REPORT INFORMATION
  Report Type: 
  Country: None (occurrence: None)
  Receive Date: 20081222
  Receipt Date: 20081119
  Transmission Date: 20090506
  Serious: No
  Sender: FDA-Public Use
  Company Number: US-WYE-H06912908

PATIENT
  Age: 38 Year
  Sex: Female
  Weight: 118.04 kg

DRUGS (10)
  1. PRISTIQ [Suspect]
     Dosage: 50 MG 1X PER 1 DAY, ORAL
     Route: 048
     Dates: start: 20081105
  2. TRAZODONE HCL [Concomitant]
  3. ABILIFY [Concomitant]
  4. THEOPHYLLINE [Concomitant]
  5. NEURONTIN [Concomitant]
  6. DEPAKOTE [Concomitant]
  7. TOPAMAX [Concomitant]
  8. ADVAIR DISKUS 100/50 [Concomitant]
  9. PROVENTIL [Concomitant]
  10. HYZAAR [Concomitant]

REACTIONS (1)
  - DRUG SCREEN POSITIVE [None]
